FAERS Safety Report 25492141 (Version 1)
Quarter: 2025Q2

REPORT INFORMATION
  Report Type: Spontaneous
  Country: CN (occurrence: CN)
  Receive Date: 20250630
  Receipt Date: 20250630
  Transmission Date: 20250716
  Serious: Yes (Hospitalization, Other)
  Sender: ROCHE
  Company Number: CN-ROCHE-10000323166

PATIENT
  Age: 37 Year
  Sex: Male

DRUGS (1)
  1. BALOXAVIR MARBOXIL [Suspect]
     Active Substance: BALOXAVIR MARBOXIL
     Indication: Pneumonia
     Route: 048
     Dates: start: 20250311, end: 20250311

REACTIONS (5)
  - Dermatitis exfoliative generalised [Recovering/Resolving]
  - Toxic epidermal necrolysis [Recovering/Resolving]
  - Off label use [Unknown]
  - Anaphylactic shock [Unknown]
  - Diarrhoea [Recovering/Resolving]

NARRATIVE: CASE EVENT DATE: 20250311
